FAERS Safety Report 13471240 (Version 1)
Quarter: 2017Q2

REPORT INFORMATION
  Report Type: Spontaneous
  Country: US (occurrence: US)
  Receive Date: 20170421
  Receipt Date: 20170421
  Transmission Date: 20170830
  Serious: Yes (Disabling)
  Sender: FDA-Public Use
  Company Number: None

PATIENT
  Age: 51 Year
  Sex: Female
  Weight: 55.35 kg

DRUGS (3)
  1. IODINE. [Concomitant]
     Active Substance: IODINE
  2. HYPERICUM PERFORATED [Concomitant]
  3. CYMBALTA [Suspect]
     Active Substance: DULOXETINE HYDROCHLORIDE
     Indication: DEPRESSION
     Dosage: ?          QUANTITY:1 TABLET(S);?
     Route: 048
     Dates: start: 20130715, end: 20140320

REACTIONS (10)
  - Throat irritation [None]
  - Throat tightness [None]
  - Oropharyngeal pain [None]
  - Pharyngeal paraesthesia [None]
  - Skin tightness [None]
  - Paraesthesia [None]
  - Hyperaesthesia [None]
  - Skin burning sensation [None]
  - Pharyngeal disorder [None]
  - Pain of skin [None]

NARRATIVE: CASE EVENT DATE: 20131201
